FAERS Safety Report 10084987 (Version 1)
Quarter: 2014Q2

REPORT INFORMATION
  Report Type: Spontaneous
  Country: FR (occurrence: FR)
  Receive Date: 20140417
  Receipt Date: 20140417
  Transmission Date: 20141212
  Serious: Yes (Hospitalization)
  Sender: FDA-Public Use
  Company Number: FR-ASTRAZENECA-2014SE25270

PATIENT
  Age: 22702 Day
  Sex: Female

DRUGS (11)
  1. DIPRIVAN [Suspect]
     Indication: INDUCTION OF ANAESTHESIA
     Route: 042
     Dates: start: 20140114, end: 20140114
  2. ULTIVA [Suspect]
     Indication: INDUCTION OF ANAESTHESIA
     Route: 042
     Dates: start: 20140114, end: 20140114
  3. TACROLIMUS [Concomitant]
  4. CANDESARTAN [Concomitant]
  5. BETAHISTINE [Concomitant]
  6. METFORMINE [Concomitant]
  7. FENOFIBRATE [Concomitant]
  8. FUROSEMIDE [Concomitant]
  9. METHYLPREDNISOLONE [Concomitant]
     Dates: start: 20140114, end: 20140114
  10. KETAMINE [Concomitant]
     Dates: start: 20140114, end: 20140114
  11. NORADRENALINE [Concomitant]
     Dates: start: 20140114, end: 20140114

REACTIONS (1)
  - Pancreatitis acute [Recovering/Resolving]
